FAERS Safety Report 6104472-6 (Version None)
Quarter: 2009Q1

REPORT INFORMATION
  Report Type: 
  Country: None (occurrence: None)
  Receive Date: 20090305
  Receipt Date: 20090223
  Transmission Date: 20090719
  Serious: Yes (Death)
  Sender: FDA-Public Use
  Company Number: JP-SANOFI-SYNTHELABO-A01200900319

PATIENT
  Sex: Female
  Weight: 50 kg

DRUGS (14)
  1. FLUOROURACIL [Suspect]
     Dosage: 425 MG/BODY IN BOLUS THEN 2800 MG/BODY D1-2 AS CONTINUOS INFUSION
     Dates: start: 20081205, end: 20081205
  2. DECADRON [Concomitant]
     Indication: NAUSEA
     Dosage: 4 MG
     Route: 048
     Dates: start: 20081122, end: 20081221
  3. FRANDOL S [Concomitant]
     Indication: HYPERTENSION
     Dosage: 40 MG
     Dates: start: 20081114, end: 20081225
  4. LAC-B [Concomitant]
     Indication: DIARRHOEA
     Dosage: 1 G
     Route: 048
     Dates: start: 20081114, end: 20081225
  5. LANDSEN [Concomitant]
     Indication: NEUROPATHY PERIPHERAL
     Dosage: 0.5 MG
     Route: 048
     Dates: start: 20081114, end: 20081225
  6. TAKEPRON [Concomitant]
     Indication: GASTRITIS
     Dosage: 15 MG
     Route: 048
     Dates: start: 20081114, end: 20081225
  7. ISOVORIN [Concomitant]
     Indication: RECTAL CANCER
     Dosage: 300 MG
     Route: 042
     Dates: start: 20081121, end: 20081219
  8. ASPIRIN [Concomitant]
     Indication: ANGINA PECTORIS
     Dosage: 100 MG
     Route: 048
     Dates: start: 20081114, end: 20081225
  9. PLAVIX [Concomitant]
     Indication: ANGINA PECTORIS
     Dosage: 75 MG
     Route: 048
     Dates: start: 20081114, end: 20081225
  10. SIGMART [Concomitant]
     Indication: ANGINA PECTORIS
     Dosage: 5 MG
     Route: 048
     Dates: start: 20081114, end: 20081225
  11. KYTRIL [Concomitant]
     Indication: PREMEDICATION
     Dosage: 3 MG
     Route: 042
     Dates: start: 20081121, end: 20081219
  12. DECADRON [Concomitant]
     Indication: PREMEDICATION
     Dosage: 8 MG
     Route: 042
     Dates: start: 20081121, end: 20081219
  13. ELPLAT [Suspect]
     Indication: RECTAL CANCER
     Route: 041
     Dates: start: 20081205, end: 20081205
  14. ELPLAT [Suspect]
     Route: 041
     Dates: start: 20081205, end: 20081205

REACTIONS (3)
  - BLOOD PRESSURE DECREASED [None]
  - NEUTROPHIL COUNT DECREASED [None]
  - PYREXIA [None]
